FAERS Safety Report 17857121 (Version 1)
Quarter: 2020Q2

REPORT INFORMATION
  Report Type: Spontaneous
  Country: US (occurrence: US)
  Receive Date: 20200603
  Receipt Date: 20200603
  Transmission Date: 20200714
  Serious: Yes (Other)
  Sender: FDA-Public Use
  Company Number: US-BAUSCH-BL-2020-015798

PATIENT
  Sex: Male

DRUGS (2)
  1. UCERIS [Suspect]
     Active Substance: BUDESONIDE
     Indication: PRODUCT USED FOR UNKNOWN INDICATION
     Dosage: FIRST BOX
     Route: 054
  2. UCERIS [Suspect]
     Active Substance: BUDESONIDE
     Route: 054

REACTIONS (4)
  - Product quality issue [Unknown]
  - Proctalgia [Unknown]
  - Product container issue [Unknown]
  - Rectal haemorrhage [Unknown]
